FAERS Safety Report 13366613 (Version 1)
Quarter: 2017Q1

REPORT INFORMATION
  Report Type: Spontaneous
  Country: US (occurrence: US)
  Receive Date: 20170323
  Receipt Date: 20170323
  Transmission Date: 20170429
  Serious: No
  Sender: FDA-Public Use
  Company Number: None

PATIENT
  Age: 57 Year
  Sex: Female

DRUGS (1)
  1. AMPYRA [Suspect]
     Active Substance: DALFAMPRIDINE
     Indication: MULTIPLE SCLEROSIS
     Route: 048
     Dates: start: 20170227, end: 20170323

REACTIONS (7)
  - Lipase increased [None]
  - Glucose urine present [None]
  - C-reactive protein increased [None]
  - Abdominal pain upper [None]
  - Protein urine present [None]
  - Urine ketone body present [None]
  - Neutrophil count increased [None]

NARRATIVE: CASE EVENT DATE: 20170313
